FAERS Safety Report 9384487 (Version 2)
Quarter: 2013Q4

REPORT INFORMATION
  Report Type: Spontaneous
  Country: DE (occurrence: DE)
  Receive Date: 20130705
  Receipt Date: 20131001
  Transmission Date: 20140711
  Serious: Yes (Other)
  Sender: FDA-Public Use
  Company Number: DE-JNJFOC-20130700310

PATIENT
  Age: 87 Year
  Sex: Male
  Weight: 85 kg

DRUGS (6)
  1. XARELTO [Suspect]
     Indication: CEREBROVASCULAR ACCIDENT PROPHYLAXIS
     Route: 048
     Dates: start: 20120813, end: 20130417
  2. XARELTO [Suspect]
     Indication: ATRIAL FIBRILLATION
     Route: 048
     Dates: start: 20120813, end: 20130417
  3. CANDESARTAN [Concomitant]
     Indication: HYPERTENSION
     Route: 065
     Dates: start: 201205
  4. METOPROLOL SUCCINATE [Concomitant]
     Indication: ATRIAL FIBRILLATION
     Route: 065
     Dates: start: 201205
  5. METOPROLOL SUCCINATE [Concomitant]
     Indication: HYPERTENSION
     Route: 065
     Dates: start: 201205
  6. AMLODIPINE [Concomitant]
     Indication: HYPERTENSION
     Route: 065
     Dates: start: 2008

REACTIONS (4)
  - Liver function test abnormal [Recovered/Resolved]
  - Drug-induced liver injury [Unknown]
  - Systemic lupus erythematosus [Unknown]
  - Drug-induced liver injury [Recovered/Resolved]
